FAERS Safety Report 13559482 (Version 1)
Quarter: 2017Q2

REPORT INFORMATION
  Report Type: Spontaneous
  Country: US (occurrence: US)
  Receive Date: 20170518
  Receipt Date: 20170518
  Transmission Date: 20170830
  Serious: Yes (Other)
  Sender: FDA-Public Use
  Company Number: US-APOTEX-2017AP012026

PATIENT
  Age: 6 Month
  Sex: Male
  Weight: 4 kg

DRUGS (14)
  1. MORPHINE [Suspect]
     Active Substance: MORPHINE
     Indication: AGITATION
     Dosage: 50 ?G/KG, BOLUS
     Route: 042
  2. DIAZEPAM. [Suspect]
     Active Substance: DIAZEPAM
     Dosage: 0.15 MG/KG, QID
     Route: 065
  3. FENTANYL. [Suspect]
     Active Substance: FENTANYL
     Dosage: BOLUS
     Route: 065
  4. DEXMEDETOMIDINE. [Suspect]
     Active Substance: DEXMEDETOMIDINE
     Dosage: BOLUS
     Route: 042
  5. PHENOBARBITAL. [Suspect]
     Active Substance: PHENOBARBITAL
     Indication: AGITATION
     Dosage: 0.5 MG/KG, QID
     Route: 042
  6. MIDAZOLAM HYDROCHLORIDE INJECTION [Suspect]
     Active Substance: MIDAZOLAM HYDROCHLORIDE
     Indication: AGITATION
     Dosage: 1 MCG/KG/MIN, UNK
     Route: 042
  7. LORAZEPAM. [Suspect]
     Active Substance: LORAZEPAM
     Indication: AGITATION
     Dosage: 0.1 MG/KG, UNK
     Route: 042
  8. DIAZEPAM. [Suspect]
     Active Substance: DIAZEPAM
     Indication: AGITATION
     Dosage: 0.1 MG/KG, Q.6H
     Route: 065
  9. GABAPENTIN. [Suspect]
     Active Substance: GABAPENTIN
     Indication: AGITATION
     Dosage: 5 MG/KG, EVERY 8 HOURS
     Route: 042
  10. DEXMEDETOMIDINE. [Suspect]
     Active Substance: DEXMEDETOMIDINE
     Indication: AGITATION
     Dosage: 2 ?G/KG, PER HOUR
     Route: 042
  11. FENTANYL. [Suspect]
     Active Substance: FENTANYL
     Indication: AGITATION
     Dosage: 1 ?G/KG, PER HOURS
     Route: 065
  12. MIDAZOLAM HYDROCHLORIDE INJECTION [Suspect]
     Active Substance: MIDAZOLAM HYDROCHLORIDE
     Dosage: 3 ?G/KG, PER MINUTE
     Route: 042
  13. MIDAZOLAM HYDROCHLORIDE INJECTION [Suspect]
     Active Substance: MIDAZOLAM HYDROCHLORIDE
     Dosage: BOLUS
     Route: 042
  14. METHADONE [Suspect]
     Active Substance: METHADONE HYDROCHLORIDE
     Indication: AGITATION
     Dosage: 0.15 MG/KG, Q.6H
     Route: 042

REACTIONS (2)
  - Drug ineffective [Unknown]
  - Delirium [Recovering/Resolving]
